FAERS Safety Report 8540988 (Version 3)
Quarter: 2012Q4

REPORT INFORMATION
  Report Type: 
  Country: US (occurrence: US)
  Receive Date: 20120502
  Receipt Date: 20121004
  Transmission Date: 20130627
  Serious: Yes (Other)
  Sender: FDA-Public Use
  Company Number: US-AMGEN-USASP2012026782

PATIENT
  Sex: Female
  Weight: 136 kg

DRUGS (6)
  1. XGEVA [Suspect]
     Indication: BREAST CANCER METASTATIC
     Dosage: 120 mg, qmo
     Route: 058
     Dates: start: 20110718, end: 20120306
  2. EXEMESTANE [Concomitant]
     Dosage: 25 mg, qd
     Route: 048
     Dates: start: 20090805
  3. FASLODEX                           /01285001/ [Concomitant]
     Indication: BREAST CANCER
     Dosage: 500 mg, qmo
     Route: 030
     Dates: start: 20090814
  4. CARBOPLATIN [Concomitant]
     Indication: BREAST CANCER
     Dosage: 335 mg, q4wk
     Route: 042
     Dates: start: 20111102
  5. GEMZAR [Concomitant]
     Indication: BREAST CANCER
     Dosage: 1500 mg, q4wk
     Route: 042
     Dates: start: 20111130
  6. TAXOTERE [Concomitant]

REACTIONS (3)
  - Gingival recession [Not Recovered/Not Resolved]
  - Bone loss [Not Recovered/Not Resolved]
  - Loose tooth [Unknown]
